FAERS Safety Report 25033295 (Version 2)
Quarter: 2025Q1

REPORT INFORMATION
  Report Type: Report from Study
  Country: US (occurrence: US)
  Receive Date: 20250303
  Receipt Date: 20250306
  Transmission Date: 20250409
  Serious: Yes (Other)
  Sender: UCB
  Company Number: US-UCBSA-2025011571

PATIENT
  Sex: Male
  Weight: 21.315 kg

DRUGS (15)
  1. FINTEPLA [Suspect]
     Active Substance: FENFLURAMINE
     Indication: Seizure
     Dosage: 4 MILLILITER, 2X/DAY (BID)
     Dates: start: 20241017
  2. FINTEPLA [Suspect]
     Active Substance: FENFLURAMINE
     Indication: Lennox-Gastaut syndrome
  3. CLOBAZAM [Suspect]
     Active Substance: CLOBAZAM
     Indication: Product used for unknown indication
     Dosage: 6 MILLILITER, 2X/DAY (BID)
  4. CLOBAZAM [Suspect]
     Active Substance: CLOBAZAM
  5. EPIDIOLEX [Suspect]
     Active Substance: CANNABIDIOL
     Indication: Product used for unknown indication
     Dosage: 1 MILLILITER, 2X/DAY (BID)
  6. EPIDIOLEX [Suspect]
     Active Substance: CANNABIDIOL
     Dosage: 2.5 MILLILITER, 2X/DAY (BID)
  7. EPIDIOLEX [Suspect]
     Active Substance: CANNABIDIOL
     Dosage: 2 MILLILITER, 2X/DAY (BID)
  8. RUFINAMIDE [Suspect]
     Active Substance: RUFINAMIDE
     Indication: Product used for unknown indication
     Dosage: 10 MILLILITER, 2X/DAY (BID)
  9. ONFI [Suspect]
     Active Substance: CLOBAZAM
     Indication: Product used for unknown indication
     Dosage: 6 MILLILITER, 2X/DAY (BID)
  10. BANZEL [Suspect]
     Active Substance: RUFINAMIDE
     Indication: Product used for unknown indication
     Dosage: 4 MILLILITER, 2X/DAY (BID)
  11. BANZEL [Suspect]
     Active Substance: RUFINAMIDE
     Dosage: 10 MILLILITER, 2X/DAY (BID)
  12. VALPROIC ACID [Concomitant]
     Active Substance: VALPROIC ACID
     Indication: Product used for unknown indication
     Dosage: 5 MILLILITER, 2X/DAY (BID)
  13. NAYZILAM [Concomitant]
     Active Substance: MIDAZOLAM
     Indication: Seizure
  14. CLONIDINE [Concomitant]
     Active Substance: CLONIDINE
     Indication: Product used for unknown indication
     Dosage: 0.1 MILLIGRAM, ONCE DAILY (QD)
  15. CLONAZEPAM [Concomitant]
     Active Substance: CLONAZEPAM
     Indication: Seizure

REACTIONS (7)
  - Atonic seizures [Recovering/Resolving]
  - Fall [Unknown]
  - Affective disorder [Unknown]
  - Seizure [Unknown]
  - Encephalopathy [Unknown]
  - Sleep disorder [Not Recovered/Not Resolved]
  - Contusion [Unknown]
